FAERS Safety Report 15221456 (Version 1)
Quarter: 2018Q3

REPORT INFORMATION
  Report Type: Spontaneous
  Country: ZA (occurrence: ZA)
  Receive Date: 20180731
  Receipt Date: 20180731
  Transmission Date: 20181010
  Serious: Yes (Death, Other)
  Sender: FDA-Public Use
  Company Number: ZA-PFIZER INC-2018301158

PATIENT
  Age: 71 Year
  Sex: Male

DRUGS (8)
  1. GLUCOPHAGE [Suspect]
     Active Substance: METFORMIN HYDROCHLORIDE
     Dosage: 1000 MG, UNK
  2. HUMALOG [Suspect]
     Active Substance: INSULIN LISPRO
     Dosage: 100 IU, UNK
  3. LEVEMIR [Suspect]
     Active Substance: INSULIN DETEMIR
     Dosage: 100 IU, UNK
  4. ASPAVOR [Suspect]
     Active Substance: ATORVASTATIN
     Dosage: 40 MG, UNK
  5. COVOCORT [Suspect]
     Active Substance: HYDROCORTISONE
     Dosage: 10 MG, UNK
  6. EUTHYROX [Suspect]
     Active Substance: LEVOTHYROXINE SODIUM
     Dosage: 100 UG, UNK
  7. ACCURETIC [Suspect]
     Active Substance: HYDROCHLOROTHIAZIDE\QUINAPRIL HYDROCHLORIDE
     Dosage: 20/12.5 MG
  8. COVOCORT [Suspect]
     Active Substance: HYDROCORTISONE
     Dosage: 10 MG, UNK

REACTIONS (1)
  - Death [Fatal]

NARRATIVE: CASE EVENT DATE: 20180708
